FAERS Safety Report 23137889 (Version 3)
Quarter: 2023Q4

REPORT INFORMATION
  Report Type: Spontaneous
  Country: CN (occurrence: CN)
  Receive Date: 20231102
  Receipt Date: 20231108
  Transmission Date: 20240110
  Serious: Yes (Hospitalization)
  Sender: FDA-Public Use
  Company Number: CN-002147023-NVSC2023CN232107

PATIENT
  Age: 57 Year
  Sex: Male

DRUGS (1)
  1. ELTROMBOPAG OLAMINE [Suspect]
     Active Substance: ELTROMBOPAG OLAMINE
     Indication: Platelet count decreased
     Dosage: 100 MG, BID(ONCE ON MONDAY, WEDNESDAY, FRIDAY, SUNDAY)
     Route: 048
     Dates: start: 20230826, end: 20231023

REACTIONS (4)
  - Thrombosis [Recovering/Resolving]
  - Intestinal obstruction [Recovering/Resolving]
  - Embolism arterial [Unknown]
  - Abdominal pain [Unknown]

NARRATIVE: CASE EVENT DATE: 20231016
